FAERS Safety Report 7981678-2 (Version None)
Quarter: 2011Q4

REPORT INFORMATION
  Report Type: 
  Country: None (occurrence: None)
  Receive Date: 20111215
  Receipt Date: 20111206
  Transmission Date: 20120403
  Serious: Yes (Hospitalization)
  Sender: FDA-Public Use
  Company Number: US-BAYER-2011-075641

PATIENT
  Sex: Female
  Weight: 81.633 kg

DRUGS (1)
  1. YASMIN [Suspect]

REACTIONS (1)
  - GALLBLADDER INJURY [None]
